FAERS Safety Report 6885607-4 (Version None)
Quarter: 2010Q3

REPORT INFORMATION
  Report Type: 
  Country: None (occurrence: None)
  Receive Date: 20100729
  Receipt Date: 20080709
  Transmission Date: 20110219
  Serious: No
  Sender: FDA-Public Use
  Company Number: US-PFIZER INC-2008043029

PATIENT
  Sex: Male
  Weight: 68.2 kg

DRUGS (3)
  1. CELEBREX [Suspect]
     Indication: RHEUMATOID ARTHRITIS
     Route: 048
     Dates: start: 20080515, end: 20080516
  2. CELEBREX [Suspect]
     Indication: ARTHRITIS
  3. PERCOCET [Concomitant]

REACTIONS (8)
  - FATIGUE [None]
  - FEELING ABNORMAL [None]
  - HYPERSENSITIVITY [None]
  - HYPERTONIA [None]
  - JOINT SWELLING [None]
  - RASH ERYTHEMATOUS [None]
  - RHEUMATOID FACTOR INCREASED [None]
  - WHITE BLOOD CELL COUNT INCREASED [None]
